FAERS Safety Report 10623242 (Version 1)
Quarter: 2014Q4

REPORT INFORMATION
  Report Type: Other
  Country: CH (occurrence: CH)
  Receive Date: 20141203
  Receipt Date: 20141203
  Transmission Date: 20150529
  Serious: Yes (Death, Other)
  Sender: FDA-Public Use
  Company Number: CH-MYLANLABS-2014M1012585

PATIENT
  Age: 74 Year
  Sex: Male

DRUGS (17)
  1. BELOC                              /00030002/ [Concomitant]
     Indication: ATRIAL FIBRILLATION
     Dosage: 25 MG, QD
     Route: 048
     Dates: start: 20140929, end: 20141007
  2. SELOKEN                            /00376902/ [Concomitant]
     Active Substance: METOPROLOL TARTRATE
     Indication: ATRIAL FIBRILLATION
     Dosage: 25 MG, QD
     Route: 048
     Dates: end: 20140927
  3. FONDAPARINUX [Suspect]
     Active Substance: FONDAPARINUX
     Indication: THROMBOSIS PROPHYLAXIS
     Dosage: 7.5 MG, QD
     Route: 048
     Dates: start: 20141002, end: 20141006
  4. COUMADIN [Concomitant]
     Active Substance: WARFARIN SODIUM
     Indication: ATRIAL FIBRILLATION
     Dosage: 5 MG, QD
     Dates: start: 201406, end: 20140927
  5. LOPRESSOR [Concomitant]
     Active Substance: METOPROLOL TARTRATE
     Indication: ATRIAL FIBRILLATION
     Dosage: 25 MG, QD
     Route: 048
     Dates: start: 20140928, end: 20140928
  6. SINTROM [Suspect]
     Active Substance: ACENOCOUMAROL
     Indication: ATRIAL FIBRILLATION
     Dosage: 0.5 MG, QD
     Route: 048
     Dates: start: 20141006, end: 20141006
  7. ZYVOXID [Suspect]
     Active Substance: LINEZOLID
     Indication: DEVICE RELATED INFECTION
     Dosage: 600 MG, BID
     Route: 048
     Dates: start: 20140922, end: 20141005
  8. NORVIR [Suspect]
     Active Substance: RITONAVIR
     Indication: ACQUIRED IMMUNODEFICIENCY SYNDROME
     Dosage: 100 MG, QD
     Route: 048
     Dates: start: 201406, end: 20141007
  9. NEXIUM [Concomitant]
     Active Substance: ESOMEPRAZOLE MAGNESIUM
     Indication: GASTROOESOPHAGEAL REFLUX DISEASE
     Dosage: 20 MG, QD
     Route: 048
     Dates: start: 20140928, end: 20141007
  10. ISENTRESS [Concomitant]
     Active Substance: RALTEGRAVIR POTASSIUM
     Indication: ACQUIRED IMMUNODEFICIENCY SYNDROME
     Dosage: 400 MG, BID
     Route: 048
     Dates: start: 201405, end: 20141007
  11. DAFALGAN [Concomitant]
     Active Substance: ACETAMINOPHEN
     Indication: BACK PAIN
     Dosage: 1000 MG, TID
     Route: 048
     Dates: start: 20141003, end: 20141008
  12. ZOLPIDEM                           /00914902/ [Concomitant]
     Active Substance: ZOLPIDEM\ZOLPIDEM TARTRATE
     Indication: INSOMNIA
     Dosage: 5 MG, QD
     Route: 048
     Dates: start: 20140929, end: 20141007
  13. KANAKION [Concomitant]
     Indication: ANTICOAGULATION DRUG LEVEL ABOVE THERAPEUTIC
     Dosage: 10 MG, QD
     Route: 048
     Dates: start: 20141003, end: 20141005
  14. SINTROM [Suspect]
     Active Substance: ACENOCOUMAROL
     Dosage: 2 MG, QD
     Route: 048
     Dates: start: 20140927, end: 20140928
  15. PREZISTA [Concomitant]
     Active Substance: DARUNAVIR ETHANOLATE
     Indication: ACQUIRED IMMUNODEFICIENCY SYNDROME
     Dosage: 800 MG, QD
     Route: 048
     Dates: start: 201405, end: 20141007
  16. DAPSON FATOL [Suspect]
     Active Substance: DAPSONE
     Indication: INFECTION
     Dosage: 100 MG, QD
     Route: 048
     Dates: start: 20140928, end: 20141007
  17. PARIET [Concomitant]
     Active Substance: RABEPRAZOLE SODIUM
     Indication: GASTROOESOPHAGEAL REFLUX PROPHYLAXIS
     Dosage: 20 MG, QD
     Route: 048
     Dates: end: 20140927

REACTIONS (2)
  - Anaemia [Not Recovered/Not Resolved]
  - Haemorrhagic stroke [Fatal]

NARRATIVE: CASE EVENT DATE: 20140929
